FAERS Safety Report 5784166-7 (Version None)
Quarter: 2008Q2

REPORT INFORMATION
  Report Type: 
  Country: None (occurrence: None)
  Receive Date: 20080619
  Receipt Date: 20080611
  Transmission Date: 20081010
  Serious: Yes (Other)
  Sender: FDA-Public Use
  Company Number: ENTC2008-0176

PATIENT
  Age: 52 Year
  Sex: Female

DRUGS (6)
  1. STALEVO 100 [Suspect]
     Indication: PARKINSON'S DISEASE
     Dosage: (100/25/200 MG) 100MG IN MORNING AND 100 MG AT NIGHT; 50 MG IN THE MORNING, 100 MG IN THE AFTERNOON
     Route: 048
     Dates: end: 20080527
  2. STALEVO 100 [Suspect]
     Indication: PARKINSON'S DISEASE
     Dosage: (100/25/200 MG) 100MG IN MORNING AND 100 MG AT NIGHT; 50 MG IN THE MORNING, 100 MG IN THE AFTERNOON
     Route: 048
     Dates: start: 20080528
  3. OLCADIL [Concomitant]
  4. TARGIFOR C [Concomitant]
  5. ASCORBIC ACID [Concomitant]
  6. SINEMET [Concomitant]

REACTIONS (2)
  - CONDITION AGGRAVATED [None]
  - PARKINSON'S DISEASE [None]
